FAERS Safety Report 23325709 (Version 1)
Quarter: 2023Q4

REPORT INFORMATION
  Report Type: Spontaneous
  Country: US (occurrence: None)
  Receive Date: 20231220
  Receipt Date: 20231220
  Transmission Date: 20240109
  Serious: Yes (Other)
  Sender: FDA-Public Use
  Company Number: None

PATIENT
  Sex: Male

DRUGS (3)
  1. PAZOPANIB HYDROCHLORIDE [Suspect]
     Active Substance: PAZOPANIB HYDROCHLORIDE
     Indication: Renal cancer
     Dosage: 800MG 1 TIME A DAY ORALL
     Route: 048
     Dates: start: 20230921
  2. PAZOPANIB HYDROCHLORIDE [Suspect]
     Active Substance: PAZOPANIB HYDROCHLORIDE
     Indication: Metastases to lung
  3. VOTRIENT [Concomitant]
     Active Substance: PAZOPANIB HYDROCHLORIDE

REACTIONS (1)
  - Emergency care [None]
